FAERS Safety Report 9537670 (Version 1)
Quarter: 2013Q3

REPORT INFORMATION
  Report Type: Spontaneous
  Country: US (occurrence: US)
  Receive Date: 20130919
  Receipt Date: 20130919
  Transmission Date: 20140515
  Serious: Yes (Hospitalization)
  Sender: FDA-Public Use
  Company Number: US-ELI_LILLY_AND_COMPANY-US201309002924

PATIENT
  Sex: Male

DRUGS (4)
  1. INSULIN HUMAN [Suspect]
     Dosage: 14 U, EACH MORNING
     Dates: start: 2009
  2. INSULIN HUMAN [Suspect]
     Dosage: 8 U, QD
     Dates: start: 2009
  3. INSULIN HUMAN [Suspect]
     Dosage: 6 U, EACH EVENING
  4. IRON [Concomitant]

REACTIONS (1)
  - Bacteraemia [Unknown]
